FAERS Safety Report 25065290 (Version 1)
Quarter: 2025Q1

REPORT INFORMATION
  Report Type: Spontaneous
  Country: US (occurrence: US)
  Receive Date: 20250311
  Receipt Date: 20250311
  Transmission Date: 20250409
  Serious: No
  Sender: BRECKENRIDGE PHARMACEUTICAL, INC.
  Company Number: US-Breckenridge Pharmaceutical, Inc.-2172706

PATIENT
  Age: 74 Year
  Sex: Female
  Weight: 46.364 kg

DRUGS (1)
  1. RIVASTIGMINE TRANSDERMAL SYSTEM [Suspect]
     Active Substance: RIVASTIGMINE

REACTIONS (2)
  - Application site erythema [Recovering/Resolving]
  - Application site pruritus [Unknown]
